FAERS Safety Report 7291072-8 (Version None)
Quarter: 2011Q1

REPORT INFORMATION
  Report Type: 
  Country: None (occurrence: None)
  Receive Date: 20110214
  Receipt Date: 20110131
  Transmission Date: 20110831
  Serious: Yes (Death, Hospitalization, Other)
  Sender: FDA-Public Use
  Company Number: JP-CELGENEUS-087-21880-10111720

PATIENT
  Sex: Male

DRUGS (12)
  1. REVLIMID [Suspect]
     Indication: MULTIPLE MYELOMA
     Route: 048
     Dates: start: 20100812, end: 20100828
  2. REVLIMID [Suspect]
     Route: 048
     Dates: start: 20101006, end: 20101026
  3. LENADEX [Suspect]
     Indication: MULTIPLE MYELOMA
     Route: 048
     Dates: start: 20100812, end: 20100831
  4. LENADEX [Suspect]
     Route: 048
     Dates: start: 20100909, end: 20100912
  5. REVLIMID [Suspect]
     Route: 048
     Dates: start: 20101006, end: 20101026
  6. LENADEX [Suspect]
     Route: 048
     Dates: start: 20100917, end: 20100929
  7. LENADEX [Suspect]
     Route: 048
     Dates: start: 20101006, end: 20101026
  8. REVLIMID [Suspect]
     Route: 048
     Dates: start: 20100916, end: 20100929
  9. REVLIMID [Suspect]
     Route: 048
     Dates: start: 20100909, end: 20100915
  10. LENADEX [Suspect]
     Route: 048
     Dates: start: 20100101, end: 20110106
  11. ASPIRIN [Concomitant]
     Indication: PROPHYLAXIS
     Route: 048
  12. REVLIMID [Suspect]
     Route: 048
     Dates: start: 20100101, end: 20110106

REACTIONS (4)
  - NEUTROPENIA [None]
  - THROMBOCYTOPENIA [None]
  - INFLUENZA [None]
  - PNEUMONIA [None]
